FAERS Safety Report 14077730 (Version 1)
Quarter: 2017Q4

REPORT INFORMATION
  Report Type: Report from Study
  Country: None (occurrence: CA)
  Receive Date: 20171012
  Receipt Date: 20171012
  Transmission Date: 20180321
  Serious: Yes (Hospitalization, Other)
  Sender: FDA-Public Use
  Company Number: CA-ABBVIE-17K-028-2122602-00

PATIENT
  Age: 45 Year
  Sex: Male

DRUGS (2)
  1. HUMIRA [Suspect]
     Active Substance: ADALIMUMAB
     Route: 058
     Dates: start: 20170926
  2. HUMIRA [Suspect]
     Active Substance: ADALIMUMAB
     Indication: COLITIS ULCERATIVE
     Route: 058
     Dates: start: 20101222, end: 201709

REACTIONS (4)
  - Psoriasis [Not Recovered/Not Resolved]
  - Myocardial infarction [Unknown]
  - Coronary artery occlusion [Not Recovered/Not Resolved]
  - Dental plaque [Not Recovered/Not Resolved]

NARRATIVE: CASE EVENT DATE: 2017
